FAERS Safety Report 15100075 (Version 1)
Quarter: 2018Q3

REPORT INFORMATION
  Report Type: Report from Study
  Country: None (occurrence: BR)
  Receive Date: 20180703
  Receipt Date: 20180703
  Transmission Date: 20181010
  Serious: Yes (Other)
  Sender: FDA-Public Use
  Company Number: BR-ABBVIE-18K-020-2405567-00

PATIENT
  Age: 65 Year
  Sex: Female

DRUGS (1)
  1. HUMIRA [Suspect]
     Active Substance: ADALIMUMAB
     Indication: PSORIATIC ARTHROPATHY
     Route: 058
     Dates: start: 20180614

REACTIONS (5)
  - Hypoaesthesia [Unknown]
  - Insomnia [Unknown]
  - Paraesthesia [Unknown]
  - Palpitations [Unknown]
  - Mobility decreased [Recovering/Resolving]

NARRATIVE: CASE EVENT DATE: 20180621
